FAERS Safety Report 20339678 (Version 1)
Quarter: 2022Q1

REPORT INFORMATION
  Report Type: Spontaneous
  Country: US (occurrence: US)
  Receive Date: 20220117
  Receipt Date: 20220117
  Transmission Date: 20220423
  Serious: No
  Sender: FDA-Public Use
  Company Number: US-LEADINGPHARMA-US-2022LEASPO00002

PATIENT
  Age: 69 Year
  Sex: Female

DRUGS (2)
  1. NIFEDIPINE [Suspect]
     Active Substance: NIFEDIPINE
     Indication: Hypertension
     Route: 065
  2. GATTEX [Concomitant]
     Active Substance: TEDUGLUTIDE\WATER
     Indication: Short-bowel syndrome
     Route: 065

REACTIONS (1)
  - Product use in unapproved indication [Unknown]
